FAERS Safety Report 5080072-4 (Version None)
Quarter: 2006Q3

REPORT INFORMATION
  Report Type: 
  Country: None (occurrence: None)
  Receive Date: 20060810
  Receipt Date: 20060803
  Transmission Date: 20061208
  Serious: Yes (Other)
  Sender: FDA-Public Use
  Company Number: 2006086953

PATIENT
  Sex: Male
  Weight: 77.1115 kg

DRUGS (3)
  1. LIPITOR [Suspect]
     Indication: CORONARY ARTERIAL STENT INSERTION
     Dosage: 10 MG (10 MG, 1 IN 1 D), ORAL
     Route: 048
     Dates: start: 20030101
  2. PLAVIX [Concomitant]
  3. TOPROL-XL [Concomitant]

REACTIONS (5)
  - BACK DISORDER [None]
  - HAEMATOSPERMIA [None]
  - MUSCULOSKELETAL DISCOMFORT [None]
  - PAIN [None]
  - PAIN IN EXTREMITY [None]
